FAERS Safety Report 8162508-5 (Version None)
Quarter: 2012Q1

REPORT INFORMATION
  Report Type: 
  Country: None (occurrence: None)
  Receive Date: 20120221
  Receipt Date: 20120213
  Transmission Date: 20120608
  Serious: Yes (Hospitalization)
  Sender: FDA-Public Use
  Company Number: 1000028409

PATIENT
  Age: 67 Year
  Sex: Female

DRUGS (6)
  1. LISINOPRIL [Concomitant]
  2. DALIRESP [Suspect]
     Indication: CHRONIC OBSTRUCTIVE PULMONARY DISEASE
     Dosage: 500 MCG (500 MCG, 1 IN 1 D)
     Dates: start: 20120125, end: 20120101
  3. SPIRIVA (TIOTROPIUM BROMIDE)(TIOTROPIUM BROMIDE) [Concomitant]
  4. ASPIRIN [Suspect]
  5. ADVAIR (SERETIDE)(SERETIDE) [Concomitant]
  6. VENTOLIN (ALBUTEROL)(ALBUTEROL) [Concomitant]

REACTIONS (5)
  - BLISTER [None]
  - GASTRIC DISORDER [None]
  - DIVERTICULUM [None]
  - DIARRHOEA HAEMORRHAGIC [None]
  - DYSPNOEA [None]
